FAERS Safety Report 15938758 (Version 1)
Quarter: 2019Q1

REPORT INFORMATION
  Report Type: Spontaneous
  Country: US (occurrence: US)
  Receive Date: 20190208
  Receipt Date: 20190208
  Transmission Date: 20190417
  Serious: No
  Sender: FDA-Public Use
  Company Number: US-SA-2019SA034805

PATIENT
  Sex: Male

DRUGS (2)
  1. XOPENEX HFA [Concomitant]
     Active Substance: LEVALBUTEROL TARTRATE
  2. DUPIXENT [Suspect]
     Active Substance: DUPILUMAB
     Indication: DERMATITIS CONTACT
     Dosage: 300 MG, QOW

REACTIONS (1)
  - Skin irritation [Not Recovered/Not Resolved]
